FAERS Safety Report 6941418-2 (Version None)
Quarter: 2010Q3

REPORT INFORMATION
  Report Type: 
  Country: None (occurrence: None)
  Receive Date: 20100825
  Receipt Date: 20100819
  Transmission Date: 20110219
  Serious: Yes (Death, Hospitalization, Other)
  Sender: FDA-Public Use
  Company Number: JP-ABBOTT-10P-087-0633572-00

PATIENT
  Sex: Female
  Weight: 49 kg

DRUGS (12)
  1. HUMIRA [Suspect]
     Indication: RHEUMATOID ARTHRITIS
     Route: 058
     Dates: start: 20100121, end: 20100304
  2. METHOTREXATE [Suspect]
     Indication: RHEUMATOID ARTHRITIS
     Dosage: 6MG PER WEEK
     Dates: start: 20090310
  3. METHOTREXATE [Suspect]
     Dosage: 8MG PER WEEK
     Route: 048
     Dates: start: 20090608, end: 20100309
  4. ISONIAZID [Concomitant]
     Indication: ANTIBIOTIC PROPHYLAXIS
     Dates: start: 20100114
  5. PREDNISOLONE [Concomitant]
     Indication: RHEUMATOID ARTHRITIS
     Dates: start: 20090310
  6. PREDNISOLONE [Concomitant]
  7. ALENDRONATE SODIUM [Concomitant]
     Indication: OSTEOPOROSIS
     Dates: end: 20100317
  8. FERROUS CITRATE [Concomitant]
     Indication: ANAEMIA
     Dosage: 50 MG DAILY
     Route: 048
  9. FERROUS CITRATE [Concomitant]
     Dates: start: 20090706
  10. CELECOXIB [Concomitant]
     Indication: RHEUMATOID ARTHRITIS
     Dates: start: 20090331
  11. REBAMIPIDE [Concomitant]
     Indication: PRODUCT USED FOR UNKNOWN INDICATION
  12. MAGNESIUM OXIDE [Concomitant]
     Indication: CONSTIPATION
     Dates: start: 20090316

REACTIONS (4)
  - ENDOTRACHEAL INTUBATION COMPLICATION [None]
  - PNEUMONIA [None]
  - RESPIRATORY DISORDER [None]
  - URINE OUTPUT DECREASED [None]
